FAERS Safety Report 24166682 (Version 1)
Quarter: 2024Q3

REPORT INFORMATION
  Report Type: Spontaneous
  Country: IR (occurrence: IR)
  Receive Date: 20240802
  Receipt Date: 20240802
  Transmission Date: 20241017
  Serious: Yes (Death, Life-Threatening, Hospitalization)
  Sender: RANBAXY
  Company Number: IR-SUN PHARMACEUTICAL INDUSTRIES LTD-2024R1-460109

PATIENT
  Age: 40 Year
  Sex: Male

DRUGS (2)
  1. DEXAMETHASONE [Suspect]
     Active Substance: DEXAMETHASONE
     Indication: COVID-19 pneumonia
     Dosage: 4 MILLIGRAM, TID
     Route: 065
  2. TOCILIZUMAB [Suspect]
     Active Substance: TOCILIZUMAB
     Indication: COVID-19 pneumonia
     Dosage: UNK (800 MG)
     Route: 065

REACTIONS (3)
  - Condition aggravated [Fatal]
  - Barotrauma [Fatal]
  - Therapeutic response decreased [Fatal]
